FAERS Safety Report 5866542-7 (Version None)
Quarter: 2008Q3

REPORT INFORMATION
  Report Type: 
  Country: None (occurrence: None)
  Receive Date: 20080902
  Receipt Date: 20080825
  Transmission Date: 20090109
  Serious: Yes (Other)
  Sender: FDA-Public Use
  Company Number: US-CELGENEUS-163-20785-08081296

PATIENT
  Sex: Female

DRUGS (3)
  1. THALOMID [Suspect]
     Indication: MULTIPLE MYELOMA
     Route: 048
     Dates: start: 20080421
  2. THALOMID [Suspect]
     Route: 048
     Dates: start: 20080123, end: 20080401
  3. THALOMID [Suspect]
     Route: 048
     Dates: start: 20070725, end: 20070101

REACTIONS (3)
  - ACCIDENT [None]
  - HIP SURGERY [None]
  - HYPOAESTHESIA [None]
